FAERS Safety Report 15278599 (Version 1)
Quarter: 2018Q3

REPORT INFORMATION
  Report Type: Spontaneous
  Country: US (occurrence: US)
  Receive Date: 20180815
  Receipt Date: 20180815
  Transmission Date: 20181010
  Serious: No
  Sender: FDA-Public Use
  Company Number: US-BIOGEN-2018BI00620846

PATIENT
  Sex: Female

DRUGS (1)
  1. TYSABRI [Suspect]
     Active Substance: NATALIZUMAB
     Indication: MULTIPLE SCLEROSIS
     Route: 042
     Dates: start: 20151009

REACTIONS (8)
  - Prescribed underdose [Unknown]
  - Impaired self-care [Unknown]
  - Asthenia [Unknown]
  - Feeling abnormal [Unknown]
  - Discomfort [Unknown]
  - Lethargy [Unknown]
  - Fatigue [Unknown]
  - Memory impairment [Unknown]
